FAERS Safety Report 5823243-9 (Version None)
Quarter: 2008Q3

REPORT INFORMATION
  Report Type: 
  Country: None (occurrence: None)
  Receive Date: 20080724
  Receipt Date: 20080724
  Transmission Date: 20090109
  Serious: Yes (Hospitalization, Disabling)
  Sender: FDA-Public Use
  Company Number: None

PATIENT
  Age: 59 Year
  Sex: Female
  Weight: 46.7205 kg

DRUGS (2)
  1. REGLAN [Suspect]
     Indication: DYSPNOEA
     Dosage: 1 BEDTIME;  1 EVERY 6 HOURS
     Dates: start: 20080215, end: 20080717
  2. REGLAN [Suspect]
     Indication: NAUSEA
     Dosage: 1 BEDTIME;  1 EVERY 6 HOURS
     Dates: start: 20080215, end: 20080717

REACTIONS (3)
  - ANXIETY [None]
  - DEPRESSION [None]
  - FATIGUE [None]
